FAERS Safety Report 16233588 (Version 1)
Quarter: 2019Q2

REPORT INFORMATION
  Report Type: Spontaneous
  Country: US (occurrence: US)
  Receive Date: 20190319
  Receipt Date: 20190319
  Transmission Date: 20190711
  Serious: Yes (Hospitalization)
  Sender: FDA-Public Use
  Company Number: None

PATIENT
  Age: 50 Year
  Sex: Female
  Weight: 101.6 kg

DRUGS (10)
  1. PRAMIPEXOLE. [Concomitant]
     Active Substance: PRAMIPEXOLE
  2. RANITIDINE. [Concomitant]
     Active Substance: RANITIDINE
  3. ONDASETRON [Concomitant]
     Active Substance: ONDANSETRON
  4. BEVACIZUMAB (RHUMAB VEGF) [Suspect]
     Active Substance: BEVACIZUMAB
     Dates: end: 20190124
  5. DOXIL [Suspect]
     Active Substance: DOXORUBICIN HYDROCHLORIDE
     Dates: end: 20190110
  6. MORPHINE [Concomitant]
     Active Substance: MORPHINE
  7. OXYCODONE [Concomitant]
     Active Substance: OXYCODONE
  8. BUPROPION XL [Concomitant]
     Active Substance: BUPROPION
  9. CETIRIZINE [Concomitant]
     Active Substance: CETIRIZINE HYDROCHLORIDE
  10. IBUPROFEN. [Concomitant]
     Active Substance: IBUPROFEN

REACTIONS (4)
  - Small intestinal obstruction [None]
  - Metastases to peritoneum [None]
  - Ileus [None]
  - Abdominal adhesions [None]

NARRATIVE: CASE EVENT DATE: 20190217
